FAERS Safety Report 14165546 (Version 1)
Quarter: 2017Q4

REPORT INFORMATION
  Report Type: Spontaneous
  Country: IT (occurrence: IT)
  Receive Date: 20171107
  Receipt Date: 20171107
  Transmission Date: 20180321
  Serious: Yes (Other)
  Sender: FDA-Public Use
  Company Number: IT-BAYER-2017-212521

PATIENT
  Age: 50 Year
  Sex: Female

DRUGS (2)
  1. ALIFLUS [Concomitant]
     Active Substance: FLUTICASONE PROPIONATE\SALMETEROL XINAFOATE
     Dosage: 1 DF, QD
     Route: 055
  2. ASPIRINA 500 MG [Suspect]
     Active Substance: ASPIRIN
     Indication: PAIN
     Dosage: 500 MG, QD
     Route: 048
     Dates: start: 20171023, end: 20171023

REACTIONS (1)
  - Malaise [Recovered/Resolved]

NARRATIVE: CASE EVENT DATE: 20171023
